FAERS Safety Report 8174359 (Version 4)
Quarter: 2014Q1

REPORT INFORMATION
  Report Type: Spontaneous
  Country: US (occurrence: US)
  Receive Date: 20111010
  Receipt Date: 20140128
  Transmission Date: 20141002
  Serious: Yes (Other)
  Sender: FDA-Public Use
  Company Number: US-GLAXOSMITHKLINE-B0753961A

PATIENT
  Age: 55 Year
  Sex: Female
  Weight: 122.7 kg

DRUGS (1)
  1. AVANDIA [Suspect]
     Indication: DIABETES MELLITUS
     Route: 048
     Dates: start: 20050816, end: 20070904

REACTIONS (3)
  - Hypertensive heart disease [Not Recovered/Not Resolved]
  - Cardiac failure congestive [Unknown]
  - Palpitations [Unknown]
